FAERS Safety Report 6902312-6 (Version None)
Quarter: 2010Q3

REPORT INFORMATION
  Report Type: 
  Country: None (occurrence: None)
  Receive Date: 20100803
  Receipt Date: 20080510
  Transmission Date: 20110219
  Serious: No
  Sender: FDA-Public Use
  Company Number: US-PFIZER INC-2008032569

PATIENT
  Sex: Male
  Weight: 91.6 kg

DRUGS (6)
  1. LYRICA [Suspect]
     Indication: BACK PAIN
     Route: 048
     Dates: start: 20080317, end: 20080422
  2. OXYCONTIN [Concomitant]
  3. TAMSULOSIN HYDROCHLORIDE [Concomitant]
  4. CIPROFLOXACIN [Concomitant]
  5. AMBIEN [Concomitant]
  6. CELEXA [Concomitant]

REACTIONS (1)
  - WEIGHT INCREASED [None]
